FAERS Safety Report 26205442 (Version 1)
Quarter: 2025Q4

REPORT INFORMATION
  Report Type: Report from Study
  Country: US (occurrence: US)
  Receive Date: 20251228
  Receipt Date: 20251228
  Transmission Date: 20260117
  Serious: Yes (Other)
  Sender: BAUSCH AND LOMB
  Company Number: US-BAUSCHBL-2025BNL033825

PATIENT
  Age: 77 Year
  Sex: Female

DRUGS (3)
  1. XIIDRA [Suspect]
     Active Substance: LIFITEGRAST
     Indication: Product used for unknown indication
     Route: 047
     Dates: start: 20251127
  2. ERYTHROMYCIN [Concomitant]
     Active Substance: ERYTHROMYCIN
     Dosage: OINTMENT 3.5GM AT NIGHT OPHTHALMIC
  3. MOXIFLOXACIN [Concomitant]
     Active Substance: MOXIFLOXACIN
     Dosage: 0.5% OPHTHALMIC SOLUTION 4 TIMES A DAY

REACTIONS (3)
  - Ulcerative keratitis [Not Recovered/Not Resolved]
  - Photophobia [Recovering/Resolving]
  - Eye irritation [Recovering/Resolving]
